FAERS Safety Report 9322421 (Version 1)
Quarter: 2013Q2

REPORT INFORMATION
  Report Type: Spontaneous
  Country: US (occurrence: US)
  Receive Date: 20130531
  Receipt Date: 20130531
  Transmission Date: 20140414
  Serious: No
  Sender: FDA-Public Use
  Company Number: US-PFIZER INC-2013164817

PATIENT
  Sex: 0

DRUGS (2)
  1. TORISEL [Suspect]
     Dosage: UNK
  2. GEMCITABINE HYDROCHLORIDE [Suspect]
     Dosage: UNK

REACTIONS (3)
  - Mucosal inflammation [Not Recovered/Not Resolved]
  - Stomatitis [Not Recovered/Not Resolved]
  - Rash [Not Recovered/Not Resolved]
